FAERS Safety Report 11246432 (Version 1)
Quarter: 2015Q3

REPORT INFORMATION
  Report Type: Spontaneous
  Country: US (occurrence: None)
  Receive Date: 20150706
  Receipt Date: 20150706
  Transmission Date: 20151125
  Serious: No
  Sender: FDA-Public Use
  Company Number: None

PATIENT

DRUGS (2)
  1. OXYCODONE HCL (OXYCODONE) (TABLETS) [Suspect]
     Active Substance: OXYCODONE HYDROCHLORIDE
  2. ESTROGEN [Suspect]
     Active Substance: ESTRONE\SUS SCROFA OVARY

REACTIONS (3)
  - Contraindicated drug administered [None]
  - Wrong drug administered [None]
  - Drug dispensing error [None]
